FAERS Safety Report 4667494-8 (Version None)
Quarter: 2005Q2

REPORT INFORMATION
  Report Type: 
  Country: None (occurrence: None)
  Receive Date: 20050520
  Receipt Date: 20050513
  Transmission Date: 20051028
  Serious: Yes (Death, Hospitalization)
  Sender: FDA-Public Use
  Company Number: 200514159US

PATIENT
  Age: 74 Year
  Sex: Female

DRUGS (2)
  1. LOVENOX [Suspect]
     Dates: start: 20050212, end: 20050217
  2. COUMADIN [Concomitant]
     Dosage: DOSE: UNK

REACTIONS (2)
  - DEATH [None]
  - MUSCLE HAEMORRHAGE [None]
